FAERS Safety Report 10187638 (Version 1)
Quarter: 2014Q2

REPORT INFORMATION
  Report Type: Spontaneous
  Country: US (occurrence: US)
  Receive Date: 20140522
  Receipt Date: 20140522
  Transmission Date: 20141212
  Serious: No
  Sender: FDA-Public Use
  Company Number: US-SANOFI-AVENTIS-2013SA082656

PATIENT
  Age: 81 Year
  Sex: Male

DRUGS (3)
  1. LANTUS SOLOSTAR [Suspect]
     Indication: TYPE 2 DIABETES MELLITUS
     Dosage: DOSE:10 UNIT(S)
     Route: 051
  2. REPAGLINIDE [Suspect]
     Route: 065
  3. GLUCOPHAGE [Suspect]
     Route: 065

REACTIONS (4)
  - Renal impairment [Unknown]
  - Hunger [Unknown]
  - Disturbance in attention [Unknown]
  - Vision blurred [Unknown]
